FAERS Safety Report 6021586-X (Version None)
Quarter: 2008Q4

REPORT INFORMATION
  Report Type: 
  Country: None (occurrence: None)
  Receive Date: 20081229
  Receipt Date: 20081223
  Transmission Date: 20090506
  Serious: Yes (Other)
  Sender: FDA-Public Use
  Company Number: PHEH2008US10887

PATIENT
  Sex: Female

DRUGS (2)
  1. SANDOSTATIN [Suspect]
  2. PLAVIX [Interacting]
     Dosage: 600 MG, UNK

REACTIONS (4)
  - DRUG INTERACTION [None]
  - STENT PLACEMENT [None]
  - SURGERY [None]
  - THROMBOSIS [None]
